FAERS Safety Report 12308120 (Version 1)
Quarter: 2016Q2

REPORT INFORMATION
  Report Type: Spontaneous
  Country: BR (occurrence: BR)
  Receive Date: 20160426
  Receipt Date: 20160426
  Transmission Date: 20160815
  Serious: Yes (Other)
  Sender: FDA-Public Use
  Company Number: BR-PFIZER INC-2016227387

PATIENT
  Age: 50 Year
  Sex: Male
  Weight: 72 kg

DRUGS (5)
  1. FOLIC ACID. [Concomitant]
     Active Substance: FOLIC ACID
     Dosage: 5 ML, ^ONE TIMES^
  2. ALENDRONATE [Concomitant]
     Active Substance: ALENDRONATE SODIUM
     Dosage: 70 ML, ONCE WEEKLY
  3. TALIGLUCERASE ALFA [Suspect]
     Active Substance: TALIGLUCERASE ALFA
     Indication: GAUCHER^S DISEASE
     Dosage: 21 FLASKS, EVERY 15 DAYS
  4. CALCIUM CARBONATE AND VITAMIN D [Concomitant]
     Dosage: 60 ML, 2X/DAY
  5. RANITIDINE. [Concomitant]
     Active Substance: RANITIDINE
     Indication: GAUCHER^S DISEASE
     Dosage: 150 ML, EVERY 12 HOURS

REACTIONS (2)
  - Flavivirus infection [Not Recovered/Not Resolved]
  - Influenza [Not Recovered/Not Resolved]

NARRATIVE: CASE EVENT DATE: 201604
